FAERS Safety Report 12005667 (Version 1)
Quarter: 2016Q1

REPORT INFORMATION
  Report Type: Spontaneous
  Country: IT (occurrence: IT)
  Receive Date: 20160205
  Receipt Date: 20160205
  Transmission Date: 20160526
  Serious: Yes (Death, Other)
  Sender: FDA-Public Use
  Company Number: IT-HOSPIRA-3156425

PATIENT
  Age: 67 Year
  Sex: Female

DRUGS (4)
  1. GEMCITABINE HYDROCHLORIDE. [Suspect]
     Active Substance: GEMCITABINE HYDROCHLORIDE
     Indication: SQUAMOUS CELL CARCINOMA
  2. CISPLATIN. [Suspect]
     Active Substance: CISPLATIN
     Indication: SQUAMOUS CELL CARCINOMA
  3. GEMCITABINE HYDROCHLORIDE. [Suspect]
     Active Substance: GEMCITABINE HYDROCHLORIDE
     Indication: NON-SMALL CELL LUNG CANCER
  4. CISPLATIN. [Suspect]
     Active Substance: CISPLATIN
     Indication: NON-SMALL CELL LUNG CANCER

REACTIONS (4)
  - Septic shock [Fatal]
  - Pneumothorax [Unknown]
  - Empyema [Unknown]
  - Neutropenia [Unknown]
